FAERS Safety Report 25919191 (Version 1)
Quarter: 2025Q4

REPORT INFORMATION
  Report Type: Spontaneous
  Country: US (occurrence: None)
  Receive Date: 20251013
  Receipt Date: 20251013
  Transmission Date: 20260118
  Serious: Yes (Other)
  Sender: FDA-CTU
  Company Number: None

PATIENT
  Age: 92 Year
  Sex: Female

DRUGS (1)
  1. ACTHAR [Suspect]
     Active Substance: CORTICOTROPIN
     Dosage: OTHER FREQUENCY : EVERY72HOURS;?STRENGTH: 80U/ML

REACTIONS (4)
  - Therapy cessation [None]
  - Eye swelling [None]
  - Swelling face [None]
  - Alopecia [None]
